FAERS Safety Report 18927949 (Version 1)
Quarter: 2021Q1

REPORT INFORMATION
  Report Type: Report from Study
  Country: US (occurrence: US)
  Receive Date: 20210223
  Receipt Date: 20210223
  Transmission Date: 20210420
  Serious: Yes (Life-Threatening, Hospitalization)
  Sender: FDA-Public Use
  Company Number: US-MYLANLABS-2021M1011141

PATIENT
  Age: 60 Year
  Sex: Male

DRUGS (3)
  1. SALINE                             /00075401/ [Concomitant]
     Active Substance: SODIUM CHLORIDE
     Indication: DRUG THERAPY
     Dosage: CARBOPLATIN ADMINISTERED IN 0.9% SALINE (TOTAL VOLUME 54ML) OVER 72 HOURS
  2. CARBOPLATIN. [Suspect]
     Active Substance: CARBOPLATIN
     Indication: GLIOBLASTOMA
     Dosage: 2 MICROGRAM INTRACERBRAL INFUSION IN 0.9% SALINE ??
  3. BEVACIZUMAB. [Concomitant]
     Active Substance: BEVACIZUMAB
     Indication: GLIOBLASTOMA
     Dosage: TREATMENT STARTED AFTER 4 WEEKS OF SURGERY
     Route: 065

REACTIONS (3)
  - Brain oedema [Recovered/Resolved]
  - Embolism [Recovering/Resolving]
  - Off label use [Unknown]
